FAERS Safety Report 8965982 (Version 1)
Quarter: 2012Q4

REPORT INFORMATION
  Report Type: 
  Country: FR (occurrence: FR)
  Receive Date: 20121217
  Receipt Date: 20121217
  Transmission Date: 20130627
  Serious: Yes (Congenital Anomaly, Other)
  Sender: FDA-Public Use
  Company Number: PHHY2012FR115011

PATIENT
  Age: 6 Month
  Sex: Female

DRUGS (6)
  1. TAREG [Suspect]
     Dosage: 40 mg, UNK
     Route: 064
     Dates: end: 20121118
  2. FERINJECT [Suspect]
     Dosage: 500 mg (every 28 days), UNK
     Route: 064
  3. GUTRON [Suspect]
     Dosage: 2.5 mg, UNK
     Route: 064
     Dates: end: 20121118
  4. ARANESP [Suspect]
     Dosage: 0.06 mg (every 28 days), UNK
     Route: 064
  5. PROZAC [Suspect]
     Dosage: 20 mg, UNK
     Route: 064
     Dates: end: 20111118
  6. SPECIAFOLDINE [Suspect]
     Dosage: 0.4 mg, UNK
     Route: 064

REACTIONS (9)
  - Caudal regression syndrome [Not Recovered/Not Resolved]
  - Bone disorder [Unknown]
  - Conus medullaris syndrome [Unknown]
  - Synostosis [Unknown]
  - Premature baby [Unknown]
  - Foetal growth restriction [Unknown]
  - Single functional kidney [Unknown]
  - Single umbilical artery [Unknown]
  - Foetal exposure during pregnancy [Unknown]
